FAERS Safety Report 8191603-X (Version None)
Quarter: 2012Q1

REPORT INFORMATION
  Report Type: 
  Country: None (occurrence: None)
  Receive Date: 20120307
  Receipt Date: 20120229
  Transmission Date: 20120608
  Serious: Yes (Hospitalization)
  Sender: FDA-Public Use
  Company Number: US-ROCHE-1044817

PATIENT
  Sex: Female

DRUGS (3)
  1. XELODA [Suspect]
     Dosage: DOSE: 150 MG 1 TABLET
     Route: 048
     Dates: start: 20120118
  2. RADIATION [Concomitant]
     Indication: SMALL INTESTINE CARCINOMA
     Dates: start: 20120118
  3. XELODA [Suspect]
     Indication: SMALL INTESTINE CARCINOMA
     Dosage: DOSE: 500 MG 2 TABLETS
     Route: 048

REACTIONS (2)
  - STOMATITIS [None]
  - PULMONARY THROMBOSIS [None]
